FAERS Safety Report 6136715-7 (Version None)
Quarter: 2009Q1

REPORT INFORMATION
  Report Type: 
  Country: None (occurrence: None)
  Receive Date: 20090330
  Receipt Date: 20090323
  Transmission Date: 20090719
  Serious: Yes (Other)
  Sender: FDA-Public Use
  Company Number: PHHY2009FR10394

PATIENT

DRUGS (3)
  1. ACLASTA [Suspect]
     Route: 042
  2. ALTIM [Suspect]
     Dosage: 3 INFILTRATIONS
  3. LASIX [Concomitant]

REACTIONS (2)
  - GENERALISED OEDEMA [None]
  - WEIGHT INCREASED [None]
